FAERS Safety Report 5209730-5 (Version None)
Quarter: 2007Q1

REPORT INFORMATION
  Report Type: 
  Country: None (occurrence: None)
  Receive Date: 20070116
  Receipt Date: 20070105
  Transmission Date: 20070707
  Serious: Yes (Hospitalization, Other)
  Sender: FDA-Public Use
  Company Number: FR-PFIZER INC-2005074375

PATIENT
  Sex: Female
  Weight: 80 kg

DRUGS (2)
  1. ZYVOX [Suspect]
     Indication: INTERVERTEBRAL DISCITIS
     Route: 048
     Dates: start: 20041115, end: 20050504
  2. FUCIDINE CAP [Suspect]
     Route: 048
     Dates: start: 20041115, end: 20050504

REACTIONS (3)
  - HYPOAESTHESIA [None]
  - NEUROPATHY PERIPHERAL [None]
  - REFLEXES ABNORMAL [None]
